FAERS Safety Report 4691674-9 (Version None)
Quarter: 2005Q2

REPORT INFORMATION
  Report Type: 
  Country: None (occurrence: None)
  Receive Date: 20050616
  Receipt Date: 20050606
  Transmission Date: 20051028
  Serious: Yes (Life-Threatening, Hospitalization)
  Sender: FDA-Public Use
  Company Number: GB-JNJFOC-20050602786

PATIENT
  Age: 26 Year
  Sex: Female

DRUGS (5)
  1. IBUPROFEN [Suspect]
     Indication: SUICIDE ATTEMPT
  2. PARACETAMOL [Suspect]
  3. PARACETAMOL [Suspect]
     Indication: SUICIDE ATTEMPT
  4. CITALOPRAM HYDROBROMIDE [Suspect]
     Indication: DEPRESSION
     Route: 049
  5. DIAZEPAM [Concomitant]
     Route: 049

REACTIONS (3)
  - INTENTIONAL SELF-INJURY [None]
  - OVERDOSE [None]
  - SUICIDE ATTEMPT [None]
